FAERS Safety Report 7341135-3 (Version None)
Quarter: 2011Q1

REPORT INFORMATION
  Report Type: 
  Country: None (occurrence: None)
  Receive Date: 20110309
  Receipt Date: 20110303
  Transmission Date: 20110831
  Serious: Yes (Hospitalization)
  Sender: FDA-Public Use
  Company Number: A0916447A

PATIENT
  Age: 86 Year
  Sex: Male

DRUGS (2)
  1. GABAPENTIN [Concomitant]
  2. VOTRIENT [Suspect]
     Dosage: 4TAB PER DAY
     Route: 048
     Dates: start: 20110101

REACTIONS (5)
  - GRIP STRENGTH DECREASED [None]
  - ELECTROMYOGRAM ABNORMAL [None]
  - PAIN IN EXTREMITY [None]
  - HYPOAESTHESIA [None]
  - PERONEAL NERVE PALSY [None]
